FAERS Safety Report 8677724 (Version 4)
Quarter: 2012Q4

REPORT INFORMATION
  Report Type: 
  Country: US (occurrence: US)
  Receive Date: 20120723
  Receipt Date: 20120924
  Transmission Date: 20130627
  Serious: Yes (Hospitalization, Other)
  Sender: FDA-Public Use
  Company Number: US-PFIZER INC-2012168229

PATIENT
  Age: 64 Year
  Sex: Male
  Weight: 98.2 kg

DRUGS (9)
  1. AXITINIB [Suspect]
     Indication: METASTATIC RENAL CELL CARCINOMA
     Dosage: 3 mg, 2x/day, post lead-in period
     Route: 048
     Dates: start: 20100915, end: 20120708
  2. ALLEGRA [Concomitant]
     Indication: MULTIPLE ALLERGIES
     Dosage: 1 tablet, as needed
     Route: 048
     Dates: start: 2005
  3. TOPROL XL [Concomitant]
     Indication: HYPERTENSION
     Dosage: 50 mg, 1x/day
     Route: 048
     Dates: start: 200708
  4. CLONIDINE [Concomitant]
     Indication: HYPERTENSION
     Dosage: 0.1 mg, as needed
     Route: 048
     Dates: start: 20101118
  5. LISINOPRIL W/HYDROCHLOROTHIAZIDE [Concomitant]
     Indication: HYPERTENSION
     Dosage: 10/12.5 mg, 1x/day
     Route: 048
     Dates: start: 20110302
  6. EFFEXOR [Concomitant]
     Indication: ANXIETY
     Dosage: 37.5 mg, 1x/day
     Route: 048
     Dates: start: 201001
  7. LOMOTIL [Concomitant]
     Indication: DIARRHOEA
     Dosage: 1-2 Tab, as needed
     Route: 048
     Dates: start: 20110919
  8. OMEPRAZOLE [Concomitant]
     Indication: GASTROOESOPHAGEAL REFLUX DISEASE
     Dosage: 20 mg, 1x/day
     Route: 048
     Dates: start: 201106
  9. REGENECARE [Concomitant]
     Indication: PALMAR-PLANTAR ERYTHRODYSAESTHESIA SYNDROME
     Dosage: 2 %, 3-4 times/day, as needed
     Route: 061
     Dates: start: 20120109

REACTIONS (3)
  - Appendicitis [Recovered/Resolved]
  - Blood sodium decreased [Recovered/Resolved]
  - Blood creatinine increased [Recovered/Resolved]
